FAERS Safety Report 18768222 (Version 2)
Quarter: 2021Q2

REPORT INFORMATION
  Report Type: Spontaneous
  Country: DE (occurrence: DE)
  Receive Date: 20210121
  Receipt Date: 20210519
  Transmission Date: 20210717
  Serious: Yes (Congenital Anomaly, Other)
  Sender: FDA-Public Use
  Company Number: DE-TORRENT-00019436

PATIENT
  Sex: Male
  Weight: 2 kg

DRUGS (5)
  1. ARIPIPRAZOLE. [Suspect]
     Active Substance: ARIPIPRAZOLE
     Indication: SCHIZOPHRENIA
     Dosage: 10 [MG/D ]
     Route: 064
     Dates: start: 20191107, end: 20200704
  2. GELOREVOICE [Concomitant]
     Indication: COUGH
     Dosage: UNKNOWN
     Route: 064
     Dates: start: 20200104, end: 20200114
  3. RISPERIDONE. [Suspect]
     Active Substance: RISPERIDONE
     Indication: SCHIZOPHRENIA
     Dosage: 0.5 [MG/D ]
     Route: 064
     Dates: start: 20191107, end: 20200402
  4. L?THYROXIN [Concomitant]
     Active Substance: LEVOTHYROXINE SODIUM
     Indication: HYPOTHYROIDISM
     Dosage: 50 [G/D (BIS 25) ]
     Route: 064
     Dates: start: 20191107, end: 20200704
  5. INFLUSPLIT TETRA [Concomitant]
     Active Substance: INFLUENZA VIRUS VACCINE
     Indication: IMMUNISATION
     Dosage: UNKNOWN
     Route: 064
     Dates: start: 20200228, end: 20200228

REACTIONS (6)
  - Ventricular septal defect [Unknown]
  - Atrial septal defect [Unknown]
  - Foetal exposure during pregnancy [Unknown]
  - Double outlet right ventricle [Unknown]
  - Pulmonary artery stenosis congenital [Unknown]
  - Congenital mitral valve incompetence [Unknown]
